FAERS Safety Report 4600721-1 (Version None)
Quarter: 2005Q1

REPORT INFORMATION
  Report Type: 
  Country: None (occurrence: None)
  Receive Date: 20050304
  Receipt Date: 20050216
  Transmission Date: 20050727
  Serious: Yes (Hospitalization)
  Sender: FDA-Public Use
  Company Number: L04-TUR-01939-01

PATIENT
  Age: 32 Year
  Sex: Female

DRUGS (1)
  1. CIPRALEX (ESCITALOPRAM) [Suspect]
     Indication: OVERDOSE
     Dosage: 190 MG ONCE PO
     Route: 048

REACTIONS (12)
  - CONFUSIONAL STATE [None]
  - ELECTROCARDIOGRAM QT PROLONGED [None]
  - HYPERTHERMIA [None]
  - HYPOREFLEXIA [None]
  - HYPOTENSION [None]
  - INTENTIONAL MISUSE [None]
  - LEUKOCYTOSIS [None]
  - NAUSEA [None]
  - SINUS TACHYCARDIA [None]
  - SOMNOLENCE [None]
  - SUICIDE ATTEMPT [None]
  - VERTIGO [None]
